FAERS Safety Report 5436037-3 (Version None)
Quarter: 2007Q3

REPORT INFORMATION
  Report Type: 
  Country: None (occurrence: None)
  Receive Date: 20070831
  Receipt Date: 20070823
  Transmission Date: 20080115
  Serious: Yes (Other)
  Sender: FDA-Public Use
  Company Number: B0485056A

PATIENT
  Age: 23 Year
  Sex: Female
  Weight: 78.3 kg

DRUGS (1)
  1. TRIZIVIR [Suspect]
     Indication: ANTIVIRAL PROPHYLAXIS
     Route: 048
     Dates: start: 20070621, end: 20070820

REACTIONS (2)
  - DELIVERY [None]
  - PRE-ECLAMPSIA [None]
